FAERS Safety Report 6753758-0 (Version None)
Quarter: 2010Q2

REPORT INFORMATION
  Report Type: 
  Country: None (occurrence: None)
  Receive Date: 20100603
  Receipt Date: 20100524
  Transmission Date: 20101027
  Serious: Yes (Other)
  Sender: FDA-Public Use
  Company Number: JP-ROCHE-706659

PATIENT
  Sex: Male

DRUGS (2)
  1. XELODA [Suspect]
     Indication: LARGE INTESTINE CARCINOMA
     Dosage: NOTE: DOSAGE IS UNCERTAIN
     Route: 048
  2. ELPLAT [Concomitant]
     Dosage: NOTE: DOSE IS UNCERTAIN
     Route: 041

REACTIONS (2)
  - ALTERED STATE OF CONSCIOUSNESS [None]
  - HYPERAMMONAEMIA [None]
